FAERS Safety Report 4903595-4 (Version None)
Quarter: 2006Q1

REPORT INFORMATION
  Report Type: 
  Country: None (occurrence: None)
  Receive Date: 20060203
  Receipt Date: 20060125
  Transmission Date: 20060701
  Serious: Yes (Life-Threatening, Hospitalization)
  Sender: FDA-Public Use
  Company Number: HQWYE768908AUG05

PATIENT
  Age: 51 Year
  Sex: Male

DRUGS (13)
  1. RAPAMUNE [Suspect]
     Indication: PROPHYLAXIS AGAINST TRANSPLANT REJECTION
     Dosage: 3 MG 1X PER 1 DAY, ORAL
     Route: 048
     Dates: start: 20041127, end: 20041130
  2. RAPAMUNE [Suspect]
     Dosage: 6 MG 1X PER 1 DAY, ORAL; 3 MG 1X PER 1 DAY, ORAL
     Route: 048
     Dates: start: 20041201, end: 20050616
  3. RAPAMUNE [Suspect]
     Dosage: 6 MG 1X PER 1 DAY, ORAL; 3 MG 1X PER 1 DAY, ORAL
     Route: 048
     Dates: start: 20050617
  4. MYCOPHENOLATE MOFETIL (MYCOPHENOLATE MOFETIL, ) [Suspect]
     Indication: PROPHYLAXIS AGAINST TRANSPLANT REJECTION
     Dosage: 2 G 1X PER 1 DAY, ORAL ; 250 MG 2X PER 1 DAY, ORAL
     Route: 048
     Dates: start: 20041127, end: 20041203
  5. MYCOPHENOLATE MOFETIL (MYCOPHENOLATE MOFETIL, ) [Suspect]
     Indication: PROPHYLAXIS AGAINST TRANSPLANT REJECTION
     Dosage: 2 G 1X PER 1 DAY, ORAL ; 250 MG 2X PER 1 DAY, ORAL
     Route: 048
     Dates: start: 20041204
  6. PREDNISONE [Suspect]
     Indication: PROPHYLAXIS AGAINST TRANSPLANT REJECTION
     Dosage: UNSPECIFIED, ORAL ; 15 MG 1X PER 1 DAY, ORAL
     Route: 048
     Dates: start: 20041124, end: 20041220
  7. PREDNISONE [Suspect]
     Indication: PROPHYLAXIS AGAINST TRANSPLANT REJECTION
     Dosage: UNSPECIFIED, ORAL ; 15 MG 1X PER 1 DAY, ORAL
     Route: 048
     Dates: start: 20041221, end: 20051121
  8. ZENAPAX (DACLIZUMAB, ) [Suspect]
     Indication: PROPHYLAXIS AGAINST TRANSPLANT REJECTION
     Dosage: 125 MG, INTRAVENOUS ; 60 MG 1X PER 2 WK, INTRAVENOUS
     Route: 042
     Dates: start: 20040101, end: 20050120
  9. ZENAPAX (DACLIZUMAB, ) [Suspect]
     Indication: PROPHYLAXIS AGAINST TRANSPLANT REJECTION
     Dosage: 125 MG, INTRAVENOUS ; 60 MG 1X PER 2 WK, INTRAVENOUS
     Route: 042
     Dates: start: 20041124
  10. METOPROLOL (METOPROLOL) [Concomitant]
  11. AMLODIPINE BESYLATE [Concomitant]
  12. FUROSEMIDE [Concomitant]
  13. OMEPRAZOLE [Concomitant]

REACTIONS (3)
  - BLOOD CREATININE INCREASED [None]
  - MALNUTRITION [None]
  - TONGUE NEOPLASM MALIGNANT STAGE UNSPECIFIED [None]
